FAERS Safety Report 5680806-1 (Version None)
Quarter: 2008Q1

REPORT INFORMATION
  Report Type: 
  Country: None (occurrence: None)
  Receive Date: 20080326
  Receipt Date: 20080303
  Transmission Date: 20080703
  Serious: No
  Sender: FDA-Public Use
  Company Number: US-BOEHRINGER INGELHEIM GMBH, GERMANY-2008-BP-03270BP

PATIENT
  Sex: Female

DRUGS (11)
  1. SPIRIVA [Suspect]
     Indication: CHRONIC OBSTRUCTIVE PULMONARY DISEASE
     Route: 055
     Dates: start: 20040901
  2. FLOVENT [Concomitant]
  3. OXYGEN [Concomitant]
  4. XOPENEX [Concomitant]
  5. ENALAPRIL MALEATE [Concomitant]
  6. SYNTHROID [Concomitant]
  7. SINGULAIR [Concomitant]
  8. LIPITOR [Concomitant]
  9. WATER PILL [Concomitant]
  10. SEREVENT [Concomitant]
  11. WELLBUTRIN [Concomitant]

REACTIONS (8)
  - DRY MOUTH [None]
  - HEADACHE [None]
  - PARAESTHESIA [None]
  - PRURITUS [None]
  - RASH MACULAR [None]
  - SCAB [None]
  - SWOLLEN TONGUE [None]
  - URTICARIA [None]
